FAERS Safety Report 7979025-5 (Version None)
Quarter: 2011Q4

REPORT INFORMATION
  Report Type: 
  Country: None (occurrence: None)
  Receive Date: 20111129
  Receipt Date: 20110718
  Transmission Date: 20120403
  Serious: Yes (Other)
  Sender: FDA-Public Use
  Company Number: PHHY2011US64636

PATIENT
  Age: 4 Year
  Sex: Female

DRUGS (3)
  1. AFINITOR [Suspect]
     Indication: ASTROCYTOMA
     Dosage: 5 MG, DAILY, ORAL
     Route: 048
     Dates: start: 20110117
  2. LYSINE (LYSINE) [Concomitant]
  3. ZYRTEC [Concomitant]

REACTIONS (1)
  - PHARYNGITIS STREPTOCOCCAL [None]
